FAERS Safety Report 23854682 (Version 2)
Quarter: 2024Q2

REPORT INFORMATION
  Report Type: Report from Study
  Country: US (occurrence: US)
  Receive Date: 20240514
  Receipt Date: 20240606
  Transmission Date: 20240716
  Serious: Yes (Other)
  Sender: FDA-Public Use
  Company Number: US-JAZZ PHARMACEUTICALS-2024-US-005702

PATIENT
  Age: 35 Year
  Sex: Female

DRUGS (7)
  1. XYWAV [Suspect]
     Active Substance: CALCIUM OXYBATE\MAGNESIUM OXYBATE\POTASSIUM OXYBATE\SODIUM OXYBATE
     Indication: Hypersomnia
     Dosage: 3 GRAM
     Route: 048
     Dates: start: 20240322, end: 20240330
  2. AVEIDAOXIA [Concomitant]
     Indication: Product used for unknown indication
     Dosage: UNK 1%-1%-4%
     Dates: start: 20240129
  3. RHOFADE [Concomitant]
     Active Substance: OXYMETAZOLINE HYDROCHLORIDE
     Indication: Product used for unknown indication
     Dosage: UNK
     Dates: start: 20240129
  4. SUNOSI [Concomitant]
     Active Substance: SOLRIAMFETOL
     Indication: Product used for unknown indication
     Dosage: UNK
     Dates: start: 20240213
  5. BUSPIRONE HCL [Concomitant]
     Active Substance: BUSPIRONE HYDROCHLORIDE
     Indication: Anxiety
     Dosage: UNK UNK, BID
     Dates: start: 20240503
  6. MAGNESIUM OXIDE [Concomitant]
     Active Substance: MAGNESIUM OXIDE
     Indication: Product used for unknown indication
     Dosage: UNK UNK, QD
     Dates: start: 20240502
  7. POTASSIUM [Concomitant]
     Active Substance: POTASSIUM
     Indication: Product used for unknown indication
     Dosage: UNK, 20-OUNCE BOTTLE OF GATORADE
     Dates: start: 20240502

REACTIONS (6)
  - Arrhythmia [Unknown]
  - Condition aggravated [Unknown]
  - Nasal septum deviation [Not Recovered/Not Resolved]
  - Raynaud^s phenomenon [Unknown]
  - Central sleep apnoea syndrome [Unknown]
  - Paraesthesia [Recovering/Resolving]

NARRATIVE: CASE EVENT DATE: 20240322
